FAERS Safety Report 17683496 (Version 1)
Quarter: 2020Q2

REPORT INFORMATION
  Report Type: Spontaneous
  Country: US (occurrence: US)
  Receive Date: 20200420
  Receipt Date: 20200420
  Transmission Date: 20200714
  Serious: Yes (Other)
  Sender: FDA-Public Use
  Company Number: US-009507513-1903USA012113

PATIENT
  Sex: Female

DRUGS (5)
  1. CLOBETASOL PROPIONATE. [Concomitant]
     Active Substance: CLOBETASOL PROPIONATE
     Dosage: 30 GRAM, QD (REFILLS AS NEEDED)
     Route: 061
     Dates: start: 20130820
  2. OMEGA-3 MARINE TRIGLYCERIDES [Concomitant]
     Active Substance: FISH OIL
     Dosage: 1 CAPSULE, BID
     Route: 048
     Dates: start: 20110919
  3. ZOSTAVAX [Suspect]
     Active Substance: VARICELLA-ZOSTER VIRUS STRAIN OKA/MERCK LIVE ANTIGEN
     Indication: PROPHYLAXIS
     Dosage: 1 DOSAGE FORM
     Route: 058
     Dates: start: 20130820
  4. STERILE DILUENT (WATER) [Suspect]
     Active Substance: WATER
     Indication: PROPHYLAXIS
     Dosage: UNK
     Route: 058
     Dates: start: 20130820, end: 20130820
  5. CRESTOR [Concomitant]
     Active Substance: ROSUVASTATIN CALCIUM
     Dosage: 10 MILLIGRAM, QD
     Route: 048
     Dates: start: 20040116

REACTIONS (4)
  - Type V hyperlipidaemia [Unknown]
  - Herpes zoster oticus [Unknown]
  - Trigeminal neuralgia [Unknown]
  - Essential hypertension [Unknown]

NARRATIVE: CASE EVENT DATE: 20151221
